FAERS Safety Report 8333163-6 (Version None)
Quarter: 2012Q2

REPORT INFORMATION
  Report Type: 
  Country: None (occurrence: None)
  Receive Date: 20120503
  Receipt Date: 20120427
  Transmission Date: 20120825
  Serious: Yes (Life-Threatening)
  Sender: FDA-Public Use
  Company Number: GB-PFIZER INC-2012104463

PATIENT
  Age: 54 Year
  Sex: Male
  Weight: 128.1 kg

DRUGS (8)
  1. ACETAMINOPHEN [Suspect]
     Dosage: 500MG-1G FOUR TIMES DAILY AS NEEDED
     Route: 048
  2. QUETIAPINE FUMARATE [Suspect]
     Dosage: 300 MG, 1X/DAY AT NIGHT
     Route: 048
  3. AMLODIPINE BESYLATE [Suspect]
     Dosage: 10 MG, 1X/DAY EVERY MORNING
     Route: 048
  4. SENNA-MINT WAF [Suspect]
     Dosage: 7.5 MG, 1X/DAY AT NIGHT
     Route: 048
  5. DESLORATADINE [Suspect]
     Dosage: 5 MG, 1X/DAY EVERY MORNING
     Route: 048
  6. DABIGATRAN ETEXILATE [Suspect]
     Indication: THROMBOSIS PROPHYLAXIS
     Dosage: 220 MG, 1X/DAY FOR 31/7
     Route: 048
     Dates: start: 20120327, end: 20120422
  7. CODEINE [Suspect]
     Dosage: 30-60MG FOUR TIMES DAILY AS NEEDED
     Route: 048
  8. LITHIUM CARBONATE [Suspect]
     Dosage: 400 MG, 1X/DAY AT NIGHT
     Route: 048

REACTIONS (1)
  - DEEP VEIN THROMBOSIS [None]
